FAERS Safety Report 5104288-3 (Version None)
Quarter: 2006Q3

REPORT INFORMATION
  Report Type: 
  Country: None (occurrence: None)
  Receive Date: 20060914
  Receipt Date: 20060803
  Transmission Date: 20061208
  Serious: Yes (Hospitalization)
  Sender: FDA-Public Use
  Company Number: PHBS2006JP11797

PATIENT
  Age: 65 Year
  Sex: Male

DRUGS (3)
  1. DIOVAN [Suspect]
     Indication: HYPERTENSION
     Route: 048
  2. ADALAT [Concomitant]
  3. BAYASPIRIN [Concomitant]

REACTIONS (3)
  - ANAEMIA [None]
  - PROCEDURAL HYPOTENSION [None]
  - UPPER GASTROINTESTINAL HAEMORRHAGE [None]
